FAERS Safety Report 9688111 (Version 1)
Quarter: 2013Q4

REPORT INFORMATION
  Report Type: Spontaneous
  Country: JP (occurrence: None)
  Receive Date: 20131112
  Receipt Date: 20131112
  Transmission Date: 20140711
  Serious: Yes (Death, Hospitalization)
  Sender: FDA-Public Use
  Company Number: IPC201310-000435

PATIENT
  Age: 73 Year
  Sex: Female

DRUGS (1)
  1. ALLOPURINOL [Suspect]
     Indication: GOUT
     Dosage: 300 MG PER DAY

REACTIONS (5)
  - Drug reaction with eosinophilia and systemic symptoms [None]
  - Toxic epidermal necrolysis [None]
  - Human herpesvirus 6 infection [None]
  - Cytomegalovirus infection [None]
  - Sepsis [None]
